FAERS Safety Report 23769935 (Version 1)
Quarter: 2024Q2

REPORT INFORMATION
  Report Type: Spontaneous
  Country: US (occurrence: None)
  Receive Date: 20240421
  Receipt Date: 20240421
  Transmission Date: 20240716
  Serious: No
  Sender: FDA-Public Use
  Company Number: None

PATIENT
  Age: 31 Year
  Sex: Male
  Weight: 81 kg

DRUGS (1)
  1. ESCITALOPRAM [Suspect]
     Active Substance: ESCITALOPRAM OXALATE
     Indication: Anxiety
     Dosage: FREQUENCY : AT BEDTIME;?
     Route: 048
     Dates: start: 20240117, end: 20240201

REACTIONS (10)
  - Lethargy [None]
  - Movement disorder [None]
  - Suicidal ideation [None]
  - Feeling of despair [None]
  - Thinking abnormal [None]
  - Insomnia [None]
  - Depersonalisation/derealisation disorder [None]
  - Emotional poverty [None]
  - Non-consummation [None]
  - Speech disorder [None]

NARRATIVE: CASE EVENT DATE: 20240205
